FAERS Safety Report 23327579 (Version 1)
Quarter: 2023Q4

REPORT INFORMATION
  Report Type: Spontaneous
  Country: GB (occurrence: GB)
  Receive Date: 20231221
  Receipt Date: 20231221
  Transmission Date: 20240110
  Serious: Yes (Other)
  Sender: FDA-Public Use
  Company Number: None

PATIENT
  Age: 68 Year
  Sex: Female
  Weight: 64.6 kg

DRUGS (2)
  1. ATORVASTATIN [Suspect]
     Active Substance: ATORVASTATIN
     Indication: Product used for unknown indication
     Dosage: 1 DF, QD (EVERY NIGHT)
     Route: 065
     Dates: start: 20231212, end: 20231215
  2. Spikevax [Concomitant]
     Indication: Product used for unknown indication
     Dosage: 0.5 ML
     Route: 030
     Dates: start: 20231022, end: 20231022

REACTIONS (5)
  - Oropharyngeal blistering [Recovering/Resolving]
  - Oropharyngeal pain [Unknown]
  - Pharyngeal swelling [Unknown]
  - Myalgia [Unknown]
  - Fatigue [Unknown]

NARRATIVE: CASE EVENT DATE: 20231213
